FAERS Safety Report 6177826-X (Version None)
Quarter: 2009Q2

REPORT INFORMATION
  Report Type: 
  Country: None (occurrence: None)
  Receive Date: 20090504
  Receipt Date: 20090423
  Transmission Date: 20091009
  Serious: Yes (Life-Threatening, Other)
  Sender: FDA-Public Use
  Company Number: NO-JNJFOC-20090405743

PATIENT
  Sex: Male

DRUGS (9)
  1. REMICADE [Suspect]
     Indication: ANKYLOSING SPONDYLITIS
     Dosage: TOTAL OF 9 INFUSIONS
     Route: 042
  2. CIPRALEX [Concomitant]
     Indication: DEPRESSION
     Route: 048
  3. PARALGIN FORTE [Concomitant]
     Indication: PAIN
     Route: 048
  4. PENTASA [Concomitant]
     Indication: CROHN'S DISEASE
     Route: 048
  5. TOLVON [Concomitant]
     Indication: DEPRESSION
     Route: 048
  6. RENITEC [Concomitant]
     Indication: HYPERTENSION
     Route: 048
  7. VIVAL [Concomitant]
     Indication: ANXIETY
     Route: 048
  8. NORSPAN [Concomitant]
     Indication: PAIN
  9. OMEPRAZOLE [Concomitant]
     Indication: GASTROOESOPHAGEAL REFLUX DISEASE
     Route: 048

REACTIONS (7)
  - COLD SWEAT [None]
  - DYSPNOEA [None]
  - FEELING HOT [None]
  - INFUSION RELATED REACTION [None]
  - NAUSEA [None]
  - PALPITATIONS [None]
  - SCLERAL DISCOLOURATION [None]
